FAERS Safety Report 17713446 (Version 1)
Quarter: 2020Q2

REPORT INFORMATION
  Report Type: Spontaneous
  Country: LB (occurrence: LB)
  Receive Date: 20200427
  Receipt Date: 20200427
  Transmission Date: 20200714
  Serious: Yes (Other)
  Sender: FDA-Public Use
  Company Number: LB-ARBOR PHARMACEUTICALS, LLC-LB-2020ARB000328

PATIENT
  Age: 55 Year
  Sex: Male

DRUGS (1)
  1. EDARBI [Suspect]
     Active Substance: AZILSARTAN KAMEDOXOMIL
     Indication: HYPERTENSION
     Dosage: 40 MG, QD
     Route: 048

REACTIONS (4)
  - Packaging design issue [Unknown]
  - Drug ineffective [Unknown]
  - Product complaint [Unknown]
  - Psychotic disorder [Unknown]
